FAERS Safety Report 10498222 (Version 1)
Quarter: 2014Q4

REPORT INFORMATION
  Report Type: Spontaneous
  Country: US (occurrence: US)
  Receive Date: 20141006
  Receipt Date: 20141006
  Transmission Date: 20150528
  Serious: Yes (Hospitalization)
  Sender: FDA-Public Use
  Company Number: US-ELI_LILLY_AND_COMPANY-US201410000742

PATIENT
  Sex: Female

DRUGS (2)
  1. HUMULIN L [Suspect]
     Active Substance: INSULIN HUMAN
     Indication: BLOOD GLUCOSE ABNORMAL
     Dosage: UNK
     Route: 065
     Dates: start: 1989
  2. INSULIN HUMAN [Suspect]
     Active Substance: INSULIN HUMAN
     Indication: BLOOD GLUCOSE ABNORMAL
     Dosage: UNK
     Route: 065
     Dates: start: 1989

REACTIONS (4)
  - Glycosylated haemoglobin increased [Unknown]
  - Maternal exposure during pregnancy [Recovered/Resolved]
  - Hypoglycaemic unconsciousness [Unknown]
  - Blood glucose increased [Unknown]
